FAERS Safety Report 15989177 (Version 1)
Quarter: 2019Q1

REPORT INFORMATION
  Report Type: Spontaneous
  Country: FR (occurrence: FR)
  Receive Date: 20190221
  Receipt Date: 20190221
  Transmission Date: 20190418
  Serious: Yes (Other)
  Sender: FDA-Public Use
  Company Number: FR-AUROBINDO-AUR-APL-2019-008714

PATIENT

DRUGS (3)
  1. TRAMADOL SANDOZ [Suspect]
     Active Substance: TRAMADOL
     Dosage: 200 MILLIGRAM, DAILY,100 MG, BID (IN THE MORNING AND IN THE EVENING)
     Route: 065
     Dates: start: 2018
  2. VENLAFAXINE [Suspect]
     Active Substance: VENLAFAXINE HYDROCHLORIDE
     Indication: DEPRESSION
     Dosage: UNK
     Route: 065
  3. TRAMADOL SANDOZ [Suspect]
     Active Substance: TRAMADOL
     Indication: PAIN
     Dosage: 50 MILLIGRAM, DAILY,(AT NOON)
     Route: 065

REACTIONS (4)
  - Off label use [Unknown]
  - Pain [Unknown]
  - Arrhythmia [Unknown]
  - Myalgia [Unknown]
